FAERS Safety Report 13842753 (Version 2)
Quarter: 2020Q2

REPORT INFORMATION
  Report Type: Spontaneous
  Country: US (occurrence: US)
  Receive Date: 20170808
  Receipt Date: 20200603
  Transmission Date: 20200713
  Serious: Yes (Other)
  Sender: FDA-Public Use
  Company Number: US-ASTRAZENECA-2017SE78985

PATIENT
  Age: 18173 Day
  Sex: Male
  Weight: 99.8 kg

DRUGS (26)
  1. VICTOZA [Suspect]
     Active Substance: LIRAGLUTIDE
     Route: 065
     Dates: start: 201204, end: 201207
  2. SODIUM CHLORIDE. [Concomitant]
     Active Substance: SODIUM CHLORIDE
  3. HEPARIN (PORCINE) [Concomitant]
  4. LOPRESSOR [Concomitant]
     Active Substance: METOPROLOL TARTRATE
  5. OXYCODONE-ACETAMINOPHEN [Concomitant]
     Active Substance: ACETAMINOPHEN\OXYCODONE HYDROCHLORIDE
  6. GLUCAGON. [Concomitant]
     Active Substance: GLUCAGON
  7. BUPIVACAINE. [Concomitant]
     Active Substance: BUPIVACAINE
  8. VICTOZA [Suspect]
     Active Substance: LIRAGLUTIDE
     Dosage: 18 MG / 3 ML, SUBCUTANEOUS ONCE DAILY
     Route: 058
     Dates: start: 20120404, end: 201207
  9. GLUCOTROL [Concomitant]
     Active Substance: GLIPIZIDE
  10. IRON [Concomitant]
     Active Substance: IRON
  11. PRINIVIL [Concomitant]
     Active Substance: LISINOPRIL
  12. BYETTA [Suspect]
     Active Substance: EXENATIDE
     Route: 065
     Dates: start: 200511, end: 200603
  13. INSULIN GLARGINE [Concomitant]
     Active Substance: INSULIN GLARGINE
  14. AMLODIPINE [Concomitant]
     Active Substance: AMLODIPINE BESYLATE
  15. HYDROMORPHONE [Concomitant]
     Active Substance: HYDROMORPHONE
  16. KETOROLAC [Concomitant]
     Active Substance: KETOROLAC TROMETHAMINE
  17. DEXTROSE. [Concomitant]
     Active Substance: DEXTROSE
  18. SODIUM CHLORIDE. [Concomitant]
     Active Substance: SODIUM CHLORIDE
  19. HYDRALAZINE [Concomitant]
     Active Substance: HYDRALAZINE HYDROCHLORIDE
  20. ULTRAM [Concomitant]
     Active Substance: TRAMADOL HYDROCHLORIDE
  21. GUAIFENESIN. [Concomitant]
     Active Substance: GUAIFENESIN
  22. INSULIN LISPRO [Concomitant]
     Active Substance: INSULIN LISPRO
  23. PHENOL. [Concomitant]
     Active Substance: PHENOL
  24. HUMULIN NOS [Concomitant]
     Active Substance: INSULIN HUMAN
  25. LIDOCAINE. [Concomitant]
     Active Substance: LIDOCAINE
  26. BYETTA [Suspect]
     Active Substance: EXENATIDE
     Dosage: 10MCG
     Route: 065
     Dates: start: 20051109, end: 200601

REACTIONS (1)
  - Pancreatic carcinoma [Unknown]

NARRATIVE: CASE EVENT DATE: 20121228
